FAERS Safety Report 24099600 (Version 1)
Quarter: 2024Q3

REPORT INFORMATION
  Report Type: Report from Study
  Country: US (occurrence: US)
  Receive Date: 20240716
  Receipt Date: 20240716
  Transmission Date: 20241016
  Serious: Yes (Death)
  Sender: ABBVIE
  Company Number: US-ABBVIE-5840801

PATIENT
  Sex: Male

DRUGS (1)
  1. VENCLEXTA [Suspect]
     Active Substance: VENETOCLAX
     Indication: Chronic myelomonocytic leukaemia
     Dosage: 50 MG TABLET TAKE 1 TABLET BY MOUTH DAILY ALONG WITH ONE 100 MILLIGRAM TABLET FOR A TOTAL DOSE OF...
     Route: 048
     Dates: end: 20230708

REACTIONS (2)
  - Death [Fatal]
  - Off label use [Unknown]
